FAERS Safety Report 6986551-4 (Version None)
Quarter: 2010Q3

REPORT INFORMATION
  Report Type: 
  Country: None (occurrence: None)
  Receive Date: 20100915
  Receipt Date: 20090707
  Transmission Date: 20110219
  Serious: No
  Sender: FDA-Public Use
  Company Number: US-WYE-H10055109

PATIENT
  Sex: Female
  Weight: 50.85 kg

DRUGS (2)
  1. PRISTIQ [Suspect]
     Indication: ANXIETY
     Route: 048
     Dates: start: 20090301
  2. HYDROXYZINE [Concomitant]

REACTIONS (6)
  - CONDITION AGGRAVATED [None]
  - INSOMNIA [None]
  - PYREXIA [None]
  - STRESS [None]
  - TREMOR [None]
  - WEIGHT DECREASED [None]
